FAERS Safety Report 7243390-7 (Version None)
Quarter: 2011Q1

REPORT INFORMATION
  Report Type: 
  Country: None (occurrence: None)
  Receive Date: 20110125
  Receipt Date: 20110112
  Transmission Date: 20110831
  Serious: Yes (Other)
  Sender: FDA-Public Use
  Company Number: JP-ELI_LILLY_AND_COMPANY-JP201101002831

PATIENT
  Age: 73 Year
  Sex: Female

DRUGS (1)
  1. GEMZAR [Suspect]
     Indication: BILE DUCT CANCER STAGE III
     Dosage: 1000 MG/M2, OTHER
     Route: 042

REACTIONS (7)
  - VOMITING [None]
  - JAUNDICE CHOLESTATIC [None]
  - DECREASED APPETITE [None]
  - NAUSEA [None]
  - FATIGUE [None]
  - VACCINATION SITE ULCER [None]
  - HAEMATOTOXICITY [None]
